FAERS Safety Report 5365215-7 (Version None)
Quarter: 2007Q2

REPORT INFORMATION
  Report Type: 
  Country: None (occurrence: None)
  Receive Date: 20070530
  Receipt Date: 20070322
  Transmission Date: 20071010
  Serious: No
  Sender: FDA-Public Use
  Company Number: 2006PV019083

PATIENT
  Age: 71 Year
  Sex: Female
  Weight: 83.9154 kg

DRUGS (7)
  1. BYETTA [Suspect]
     Indication: DIABETES MELLITUS NON-INSULIN-DEPENDENT
     Dosage: 10 MCG; BID; SC; 5 MCG; BID; SC; 10 MCG; BID; SC; 5 MC; BID; SC
     Route: 058
     Dates: start: 20060204, end: 20060303
  2. BYETTA [Suspect]
     Indication: DIABETES MELLITUS NON-INSULIN-DEPENDENT
     Dosage: 10 MCG; BID; SC; 5 MCG; BID; SC; 10 MCG; BID; SC; 5 MC; BID; SC
     Route: 058
     Dates: start: 20060401, end: 20060501
  3. BYETTA [Suspect]
     Indication: DIABETES MELLITUS NON-INSULIN-DEPENDENT
     Dosage: 10 MCG; BID; SC; 5 MCG; BID; SC; 10 MCG; BID; SC; 5 MC; BID; SC
     Route: 058
     Dates: start: 20060304
  4. BYETTA [Suspect]
     Indication: DIABETES MELLITUS NON-INSULIN-DEPENDENT
     Dosage: 10 MCG; BID; SC; 5 MCG; BID; SC; 10 MCG; BID; SC; 5 MC; BID; SC
     Route: 058
     Dates: start: 20060501
  5. BYETTA [Suspect]
  6. GLYBURIDE [Concomitant]
  7. GLYBURIDE [Concomitant]

REACTIONS (7)
  - ANXIETY [None]
  - BLOOD CREATININE INCREASED [None]
  - BLOOD GLUCOSE FLUCTUATION [None]
  - HYPERHIDROSIS [None]
  - HYPOGLYCAEMIA [None]
  - TREMOR [None]
  - WEIGHT DECREASED [None]
